FAERS Safety Report 19095160 (Version 2)
Quarter: 2021Q2

REPORT INFORMATION
  Report Type: Spontaneous
  Country: US (occurrence: US)
  Receive Date: 20210406
  Receipt Date: 20210415
  Transmission Date: 20210717
  Serious: Yes (Death, Hospitalization, Other)
  Sender: FDA-Public Use
  Company Number: US-009507513-2104USA000322

PATIENT
  Age: 77 Year
  Sex: Female
  Weight: 82 kg

DRUGS (18)
  1. ROSUVASTATIN. [Concomitant]
     Active Substance: ROSUVASTATIN
  2. FLUOXETINE [Concomitant]
     Active Substance: FLUOXETINE HYDROCHLORIDE
  3. ERGOCALCIFEROL. [Concomitant]
     Active Substance: ERGOCALCIFEROL
  4. ACETAMINOPHEN (+) HYDROCODONE BITARTRATE [Concomitant]
     Active Substance: ACETAMINOPHEN\HYDROCODONE BITARTRATE
  5. VITAMINS (UNSPECIFIED) [Concomitant]
     Active Substance: VITAMINS
  6. ONDANSETRON [Concomitant]
     Active Substance: ONDANSETRON
  7. ACETAMINOPHEN. [Concomitant]
     Active Substance: ACETAMINOPHEN
  8. LACTULOSE. [Concomitant]
     Active Substance: LACTULOSE
  9. DOXYCYCLINE HYCLATE. [Concomitant]
     Active Substance: DOXYCYCLINE HYCLATE
  10. JANUMET [Suspect]
     Active Substance: METFORMIN HYDROCHLORIDE\SITAGLIPTIN PHOSPHATE
     Dosage: ONE TABLET TWICE DAILY
     Route: 048
  11. OMEPRAZOLE. [Concomitant]
     Active Substance: OMEPRAZOLE
  12. CHOLECALCIFEROL [Concomitant]
     Active Substance: CHOLECALCIFEROL
  13. CRANBERRY. [Concomitant]
     Active Substance: CRANBERRY
  14. GABAPENTIN. [Concomitant]
     Active Substance: GABAPENTIN
  15. AMLODIPINE [Concomitant]
     Active Substance: AMLODIPINE BESYLATE
  16. ASPIRIN. [Concomitant]
     Active Substance: ASPIRIN
  17. GLIMEPIRIDE. [Concomitant]
     Active Substance: GLIMEPIRIDE
  18. METOPROLOL TARTRATE. [Concomitant]
     Active Substance: METOPROLOL TARTRATE

REACTIONS (49)
  - Bradycardia [Unknown]
  - Metabolic encephalopathy [Unknown]
  - Thrombocytopenia [Unknown]
  - Adverse event [Unknown]
  - Anal fissure [Unknown]
  - Gastrooesophageal reflux disease [Unknown]
  - Cardiac disorder [Fatal]
  - Menopausal symptoms [Unknown]
  - Patient uncooperative [Unknown]
  - Dysphagia [Unknown]
  - Deficiency anaemia [Unknown]
  - Vitamin B12 deficiency [Unknown]
  - Balance disorder [Unknown]
  - Cystitis [Unknown]
  - Urinary incontinence [Unknown]
  - Hypoglycaemia [Unknown]
  - Diabetes mellitus inadequate control [Unknown]
  - Haemoglobin decreased [Unknown]
  - Haematuria [Unknown]
  - Memory impairment [Unknown]
  - Respiratory failure [Unknown]
  - Blood creatinine increased [Unknown]
  - Colon adenoma [Unknown]
  - Nephropathy [Unknown]
  - Osteoarthritis [Unknown]
  - Myalgia [Unknown]
  - Blood urea increased [Unknown]
  - Muscle spasms [Unknown]
  - Tremor [Unknown]
  - Adjustment disorder [Unknown]
  - Nocturia [Unknown]
  - Loss of consciousness [Unknown]
  - Ascites [Unknown]
  - Hepatic cirrhosis [Unknown]
  - Blood glucose increased [Unknown]
  - Insomnia [Unknown]
  - Vitamin D deficiency [Unknown]
  - Haemorrhoids [Unknown]
  - Blood magnesium decreased [Unknown]
  - Depression [Unknown]
  - Disorientation [Unknown]
  - Constipation [Unknown]
  - Non-alcoholic steatohepatitis [Unknown]
  - Urinary tract infection [Unknown]
  - Vitamin B complex deficiency [Unknown]
  - Irritable bowel syndrome [Unknown]
  - Arthritis [Unknown]
  - Night sweats [Unknown]
  - Body mass index abnormal [Unknown]

NARRATIVE: CASE EVENT DATE: 20210220
